FAERS Safety Report 8144891-X (Version None)
Quarter: 2012Q1

REPORT INFORMATION
  Report Type: 
  Country: None (occurrence: None)
  Receive Date: 20120217
  Receipt Date: 20120208
  Transmission Date: 20120608
  Serious: Yes (Other)
  Sender: FDA-Public Use
  Company Number: KE-GLAXOSMITHKLINE-B0781008A

PATIENT
  Age: 23 Year
  Sex: Male
  Weight: 56 kg

DRUGS (2)
  1. CEFUROXIME [Suspect]
     Indication: URINARY TRACT INFECTION
     Dosage: 1G PER DAY
     Route: 065
     Dates: start: 20120117, end: 20120121
  2. ROCEPHIN [Concomitant]
     Indication: URINARY TRACT INFECTION
     Dosage: 2G PER DAY
     Route: 042
     Dates: start: 20120114, end: 20120116

REACTIONS (3)
  - DRUG INEFFECTIVE [None]
  - PRODUCT QUALITY ISSUE [None]
  - BACTERIAL TEST POSITIVE [None]
